FAERS Safety Report 8054628-0 (Version None)
Quarter: 2012Q1

REPORT INFORMATION
  Report Type: 
  Country: None (occurrence: None)
  Receive Date: 20120119
  Receipt Date: 20120110
  Transmission Date: 20120608
  Serious: Yes (Other)
  Sender: FDA-Public Use
  Company Number: NL-AMGEN-NLDSP2011065320

PATIENT
  Age: 62 Year
  Sex: Male
  Weight: 95 kg

DRUGS (4)
  1. ENBREL [Suspect]
     Indication: RHEUMATOID ARTHRITIS
     Dosage: 50 MG, WEEKLY
     Dates: start: 20111014, end: 20111101
  2. METHOTREXATE [Concomitant]
     Dosage: 20 MG, WEEKLY
     Dates: start: 20100804
  3. FOLIC ACID [Concomitant]
     Dosage: 2 DF, WEEKLY
  4. PLAQUENIL [Concomitant]
     Dosage: 200 MG, BID
     Dates: start: 20110520

REACTIONS (7)
  - HYPOAESTHESIA ORAL [None]
  - NEUROLOGICAL SYMPTOM [None]
  - GLOSSODYNIA [None]
  - DYSGEUSIA [None]
  - NERVOUS SYSTEM DISORDER [None]
  - GUILLAIN-BARRE SYNDROME [None]
  - HYPOAESTHESIA [None]
